FAERS Safety Report 18623695 (Version 1)
Quarter: 2020Q4

REPORT INFORMATION
  Report Type: Spontaneous
  Country: US (occurrence: US)
  Receive Date: 20201216
  Receipt Date: 20201216
  Transmission Date: 20210114
  Serious: Yes (Hospitalization)
  Sender: FDA-Public Use
  Company Number: None

PATIENT
  Age: 88 Year
  Sex: Male
  Weight: 54 kg

DRUGS (6)
  1. APIXABAN 2.5 MG PO BID [Concomitant]
  2. SIMVASTATIN 20 MG PO QHS [Concomitant]
  3. LEVOTHYROXINE 50 MCG PO DAILY [Concomitant]
  4. BAMLANIVIMAB. [Suspect]
     Active Substance: BAMLANIVIMAB
     Indication: COVID-19
     Dosage: ?          OTHER FREQUENCY:ONCE;?
     Route: 042
     Dates: start: 20201212, end: 20201212
  5. ASPIRIN 81 MG PO DAILY [Concomitant]
  6. METOPROLOL SUCCINATE 100 MG PO DAILY [Concomitant]

REACTIONS (3)
  - Atrial fibrillation [None]
  - Tachycardia [None]
  - Lung opacity [None]

NARRATIVE: CASE EVENT DATE: 20201215
